FAERS Safety Report 9295146 (Version 1)
Quarter: 2013Q2

REPORT INFORMATION
  Report Type: Spontaneous
  Country: US (occurrence: US)
  Receive Date: 20130517
  Receipt Date: 20130517
  Transmission Date: 20140414
  Serious: No
  Sender: FDA-Public Use
  Company Number: US-009507513-1305USA006071

PATIENT
  Age: 56 Year
  Sex: Male

DRUGS (3)
  1. JANUMET XR [Suspect]
     Indication: DIABETES MELLITUS
     Dosage: 50MG/1000MG/QD
     Route: 048
     Dates: start: 20130409, end: 201304
  2. JANUMET XR [Suspect]
     Dosage: UNK
     Route: 048
     Dates: start: 201304, end: 201305
  3. JANUMET XR [Suspect]
     Dosage: 50MG/1000MG/QD
     Route: 048
     Dates: start: 201305

REACTIONS (1)
  - Myalgia [Recovering/Resolving]
